FAERS Safety Report 8717204 (Version 5)
Quarter: 2014Q1

REPORT INFORMATION
  Report Type: Report from Study
  Country: CA (occurrence: CA)
  Receive Date: 20120810
  Receipt Date: 20140115
  Transmission Date: 20141002
  Serious: Yes (Other)
  Sender: FDA-Public Use
  Company Number: PHHY2011CA20576

PATIENT
  Age: 85 Year
  Sex: Female

DRUGS (10)
  1. SANDOSTATIN LAR [Suspect]
     Indication: ACROMEGALY
     Dosage: 20 MG, EVERY 4 WEEKS
     Route: 030
     Dates: start: 20011213
  2. SANDOSTATIN LAR [Suspect]
     Dosage: 20 MG, EVERY 4 WEEKS
     Route: 030
  3. SANDOSTATIN LAR [Suspect]
     Dosage: 20 MG, QMO
     Route: 030
  4. CANDESARTAN [Concomitant]
     Dosage: 8 MG, UNK
  5. FELODIPINE [Concomitant]
     Dosage: 5 UKN, DAILY
  6. XALATAN [Concomitant]
  7. LORAZEPAM [Concomitant]
     Dosage: 0.5 MG, UNK
  8. TRUSOPT [Concomitant]
  9. VENTOLIN [Concomitant]
  10. LEVOTHYROXIN [Concomitant]

REACTIONS (10)
  - Dementia [Unknown]
  - Memory impairment [Unknown]
  - Diarrhoea [Unknown]
  - Fracture [Unknown]
  - Fall [Recovering/Resolving]
  - Urinary tract infection [Recovered/Resolved]
  - Blood pressure systolic increased [Unknown]
  - Oropharyngeal pain [Unknown]
  - Nasopharyngitis [Unknown]
  - Fatigue [Unknown]
